FAERS Safety Report 4904484-1 (Version None)
Quarter: 2006Q1

REPORT INFORMATION
  Report Type: 
  Country: None (occurrence: None)
  Receive Date: 20060113
  Receipt Date: 20051122
  Transmission Date: 20060701
  Serious: No
  Sender: FDA-Public Use
  Company Number: 2005SP004142

PATIENT
  Age: 82 Year
  Sex: Female
  Weight: 65.318 kg

DRUGS (6)
  1. LUNESTA [Suspect]
     Indication: MIDDLE INSOMNIA
     Dosage: 2 MG; HS; ORAL
     Route: 048
     Dates: start: 20051120, end: 20051121
  2. ACIPHEX [Concomitant]
  3. ZANTAC [Concomitant]
  4. LORAZEPAM [Concomitant]
  5. CLONIDINE [Concomitant]
  6. AMBIEN [Concomitant]

REACTIONS (2)
  - DRUG INEFFECTIVE [None]
  - MIDDLE INSOMNIA [None]
